FAERS Safety Report 7619638-3 (Version None)
Quarter: 2011Q3

REPORT INFORMATION
  Report Type: 
  Country: None (occurrence: None)
  Receive Date: 20110719
  Receipt Date: 20110705
  Transmission Date: 20111222
  Serious: Yes (Other)
  Sender: FDA-Public Use
  Company Number: AU-MYLANLABS-2011S1014411

PATIENT
  Age: 30 Year
  Sex: Female

DRUGS (4)
  1. METHAMPHETAMINE HYDROCHLORIDE [Interacting]
     Route: 065
  2. DIAZEPAM [Concomitant]
     Route: 065
  3. TRAMADOL HCL [Interacting]
     Route: 065
  4. METHYLENEDIOXYMETHAMPHETAMINE [Suspect]
     Route: 065

REACTIONS (1)
  - DRUG INTERACTION [None]
